FAERS Safety Report 10661211 (Version 2)
Quarter: 2015Q1

REPORT INFORMATION
  Report Type: Spontaneous
  Country: ES (occurrence: ES)
  Receive Date: 20141218
  Receipt Date: 20150210
  Transmission Date: 20150720
  Serious: Yes (Other)
  Sender: FDA-Public Use
  Company Number: ES-LEO PHARMA-231241

PATIENT
  Sex: Female

DRUGS (1)
  1. PICATO [Suspect]
     Active Substance: INGENOL MEBUTATE
     Indication: ACTINIC KERATOSIS
     Route: 061
     Dates: start: 20140401, end: 20140403

REACTIONS (3)
  - Squamous cell carcinoma of skin [Unknown]
  - Ulcer [Unknown]
  - Disease progression [Unknown]

NARRATIVE: CASE EVENT DATE: 20140415
